FAERS Safety Report 25874707 (Version 1)
Quarter: 2025Q4

REPORT INFORMATION
  Report Type: Spontaneous
  Country: US (occurrence: US)
  Receive Date: 20251002
  Receipt Date: 20251002
  Transmission Date: 20260118
  Serious: No
  Sender: PFIZER
  Company Number: US-PFIZER INC-PV202500117544

PATIENT
  Age: 60 Year
  Sex: Female

DRUGS (2)
  1. XELJANZ XR [Suspect]
     Active Substance: TOFACITINIB CITRATE
     Indication: Rheumatoid arthritis
     Dosage: 11 MG, 1X/DAY
     Route: 048
     Dates: start: 201801
  2. XELJANZ XR [Suspect]
     Active Substance: TOFACITINIB CITRATE
     Dosage: 11 MG (EVERY OTHER DAY)
     Route: 048

REACTIONS (5)
  - Intentional dose omission [Unknown]
  - Pain [Unknown]
  - Peripheral swelling [Unknown]
  - Joint swelling [Unknown]
  - Joint dislocation [Unknown]
